FAERS Safety Report 6078592-9 (Version None)
Quarter: 2009Q1

REPORT INFORMATION
  Report Type: 
  Country: None (occurrence: None)
  Receive Date: 20090130
  Receipt Date: 20080205
  Transmission Date: 20090719
  Serious: Yes (Hospitalization)
  Sender: FDA-Public Use
  Company Number: 8029624

PATIENT
  Sex: Female

DRUGS (3)
  1. KEPPRA [Suspect]
     Dosage: 440 MG / D PO
     Route: 048
  2. KEPPRA [Suspect]
     Dosage: 250 MG 2/D PO
     Route: 048
  3. ABILIFY [Concomitant]

REACTIONS (1)
  - GASTROENTERITIS [None]
